FAERS Safety Report 15468708 (Version 1)
Quarter: 2018Q4

REPORT INFORMATION
  Report Type: Report from Study
  Country: None (occurrence: US)
  Receive Date: 20181005
  Receipt Date: 20181005
  Transmission Date: 20190204
  Serious: Yes (Hospitalization)
  Sender: FDA-Public Use
  Company Number: US-BIOVITRUM-2018US1137

PATIENT
  Sex: Male

DRUGS (5)
  1. ORFADIN [Suspect]
     Active Substance: NITISINONE
     Indication: TYROSINAEMIA
     Route: 048
     Dates: start: 20140424
  2. CALCITRIOL. [Concomitant]
     Active Substance: CALCITRIOL
  3. PROTONIX [Concomitant]
     Active Substance: PANTOPRAZOLE SODIUM
  4. ORFADIN [Suspect]
     Active Substance: NITISINONE
     Route: 048
     Dates: start: 20170526
  5. ZANTAC [Concomitant]
     Active Substance: RANITIDINE HYDROCHLORIDE

REACTIONS (5)
  - Vomiting [Unknown]
  - Eye irritation [Unknown]
  - Influenza like illness [Unknown]
  - Photosensitivity reaction [Unknown]
  - Eye symptom [Unknown]
